FAERS Safety Report 7636740-0 (Version None)
Quarter: 2011Q3

REPORT INFORMATION
  Report Type: 
  Country: None (occurrence: None)
  Receive Date: 20110726
  Receipt Date: 20110722
  Transmission Date: 20111222
  Serious: Yes (Life-Threatening, Other)
  Sender: FDA-Public Use
  Company Number: JP-ASTRAZENECA-2011SE36004

PATIENT
  Age: 80 Year
  Sex: Male
  Weight: 43 kg

DRUGS (3)
  1. XYLOCAINE [Suspect]
     Indication: LOCAL ANAESTHESIA
     Route: 058
     Dates: start: 20110607, end: 20110607
  2. LANSOPRAZOLE [Suspect]
     Indication: GASTRIC MUCOSAL LESION
     Route: 042
     Dates: start: 20110607, end: 20110607
  3. SOLACET F [Concomitant]
     Indication: SHOCK
     Route: 042
     Dates: start: 20110607, end: 20110610

REACTIONS (1)
  - ANAPHYLACTIC SHOCK [None]
